FAERS Safety Report 7006692-5 (Version None)
Quarter: 2010Q3

REPORT INFORMATION
  Report Type: 
  Country: None (occurrence: None)
  Receive Date: 20100921
  Receipt Date: 20100920
  Transmission Date: 20110219
  Serious: Yes (Death, Hospitalization)
  Sender: FDA-Public Use
  Company Number: US-BRISTOL-MYERS SQUIBB COMPANY-15294572

PATIENT
  Age: 56 Year
  Sex: Female

DRUGS (2)
  1. CYTOXAN [Suspect]
     Indication: BREAST CANCER
     Dosage: 1500MG:26MAY10 1500MG:23JUN10 1400MG:14JUL10 1400MG:04AUG10
     Route: 065
     Dates: start: 20100526, end: 20100804
  2. TAXOTERE [Suspect]
     Indication: BREAST CANCER
     Dosage: 180MG:26MAY10 185MG:23JUN10 180MG:14JUL10 175MG:04AUG10
     Route: 051
     Dates: start: 20100526, end: 20100804

REACTIONS (1)
  - ACUTE RESPIRATORY DISTRESS SYNDROME [None]
